FAERS Safety Report 5165503-3 (Version None)
Quarter: 2006Q4

REPORT INFORMATION
  Report Type: 
  Country: None (occurrence: None)
  Receive Date: 20061128
  Receipt Date: 20061116
  Transmission Date: 20070319
  Serious: Yes (Hospitalization)
  Sender: FDA-Public Use
  Company Number: 2006-150515-NL

PATIENT
  Age: 40 Year
  Sex: Female

DRUGS (2)
  1. ETONOGESTREL [Suspect]
     Dosage: DF
     Dates: start: 20060315, end: 20060606
  2. DESOGESTREL [Concomitant]

REACTIONS (5)
  - MEDICAL DEVICE REMOVAL [None]
  - MYOCARDITIS [None]
  - RESTLESSNESS [None]
  - SLEEP DISORDER [None]
  - TACHYCARDIA [None]
